FAERS Safety Report 5074632-4 (Version None)
Quarter: 2006Q3

REPORT INFORMATION
  Report Type: 
  Country: None (occurrence: None)
  Receive Date: 20060808
  Receipt Date: 20050829
  Transmission Date: 20061208
  Serious: No
  Sender: FDA-Public Use
  Company Number: US-AMGEN-KDL148622

PATIENT
  Sex: Female
  Weight: 80.8 kg

DRUGS (10)
  1. PROCRIT [Suspect]
     Indication: ANAEMIA OF MALIGNANT DISEASE
  2. CYCLOPHOSPHAMIDE [Concomitant]
  3. METHOTREXATE [Concomitant]
  4. FLUOROURACIL [Concomitant]
  5. TAXOL [Concomitant]
  6. GEMZAR [Concomitant]
  7. PAMIDRONATE DISODIUM [Concomitant]
  8. TAXOTERE [Concomitant]
  9. AVASTIN [Concomitant]
  10. CARBOPLATIN [Concomitant]

REACTIONS (4)
  - CONDITION AGGRAVATED [None]
  - FATIGUE [None]
  - PAIN [None]
  - PAIN IN EXTREMITY [None]
